FAERS Safety Report 18597219 (Version 1)
Quarter: 2020Q4

REPORT INFORMATION
  Report Type: Report from Study
  Country: DE (occurrence: DE)
  Receive Date: 20201209
  Receipt Date: 20201209
  Transmission Date: 20210114
  Serious: Yes (Other)
  Sender: FDA-Public Use
  Company Number: NVSC2020DE274360

PATIENT
  Age: 57 Year
  Sex: Female
  Weight: 67 kg

DRUGS (3)
  1. COSENTYX [Suspect]
     Active Substance: SECUKINUMAB
     Indication: PSORIATIC ARTHROPATHY
     Dosage: 300 MG, QD
     Route: 058
     Dates: start: 20200504, end: 20200504
  2. SULFASALAZINE. [Concomitant]
     Active Substance: SULFASALAZINE
     Indication: PSORIATIC ARTHROPATHY
     Dosage: 500 MG, BID (2-0-2)
     Route: 048
     Dates: start: 20141201
  3. PREDNISOLONE. [Concomitant]
     Active Substance: PREDNISOLONE
     Indication: PSORIATIC ARTHROPATHY
     Dosage: 5 MG, UNKNOWN
     Route: 048
     Dates: start: 20111013

REACTIONS (3)
  - Iridocyclitis [Recovered/Resolved]
  - Fungal infection [Unknown]
  - Hand dermatitis [Unknown]

NARRATIVE: CASE EVENT DATE: 20200616
